FAERS Safety Report 5777475-9 (Version None)
Quarter: 2008Q2

REPORT INFORMATION
  Report Type: 
  Country: None (occurrence: None)
  Receive Date: 20080618
  Receipt Date: 20080606
  Transmission Date: 20081010
  Serious: Yes (Other)
  Sender: FDA-Public Use
  Company Number: US-BAYER-200825051NA

PATIENT
  Age: 54 Year
  Sex: Female
  Weight: 82 kg

DRUGS (4)
  1. ULTRAVIST 300 [Suspect]
     Indication: COMPUTERISED TOMOGRAM ABDOMEN
     Dosage: AS USED: 129 ML  UNIT DOSE: 150 ML
     Route: 042
     Dates: start: 20080604, end: 20080604
  2. REDDI KAT [Concomitant]
     Indication: COMPUTERISED TOMOGRAM ABDOMEN
     Dates: start: 20080604, end: 20080604
  3. INHALERS [Concomitant]
  4. PREMEDICATION [Concomitant]
     Indication: PREMEDICATION

REACTIONS (6)
  - DIZZINESS [None]
  - DYSPHAGIA [None]
  - NASAL DISCOMFORT [None]
  - SNEEZING [None]
  - THROAT TIGHTNESS [None]
  - URTICARIA [None]
